FAERS Safety Report 22624259 (Version 2)
Quarter: 2023Q4

REPORT INFORMATION
  Report Type: Spontaneous
  Country: PL (occurrence: PL)
  Receive Date: 20230621
  Receipt Date: 20231005
  Transmission Date: 20240109
  Serious: Yes (Hospitalization, Other)
  Sender: FDA-Public Use
  Company Number: PL-GILEAD-2023-0633404

PATIENT
  Age: 25 Year
  Sex: Male
  Weight: 71 kg

DRUGS (1)
  1. BIKTARVY [Suspect]
     Active Substance: BICTEGRAVIR SODIUM\EMTRICITABINE\TENOFOVIR ALAFENAMIDE FUMARATE
     Indication: HIV infection
     Dosage: UNK
     Route: 065
     Dates: start: 202105

REACTIONS (3)
  - Pneumonia [Unknown]
  - Dysuria [Unknown]
  - Splenomegaly [Unknown]

NARRATIVE: CASE EVENT DATE: 20220408
